FAERS Safety Report 15619794 (Version 1)
Quarter: 2018Q4

REPORT INFORMATION
  Report Type: Spontaneous
  Country: US (occurrence: US)
  Receive Date: 20181115
  Receipt Date: 20181115
  Transmission Date: 20190205
  Serious: No
  Sender: FDA-Public Use
  Company Number: US-TRIS PHARMA, INC.-2018TRISPO01110

PATIENT

DRUGS (1)
  1. QUILLIVANT XR [Suspect]
     Active Substance: METHYLPHENIDATE HYDROCHLORIDE
     Indication: ATTENTION DEFICIT/HYPERACTIVITY DISORDER
     Dosage: 4 ML, ONCE IN THE MORNING
     Route: 065
     Dates: start: 20180817

REACTIONS (4)
  - Drug effect incomplete [Unknown]
  - Mydriasis [Recovered/Resolved]
  - Decreased appetite [Unknown]
  - Pruritus generalised [Recovered/Resolved]
